FAERS Safety Report 20094116 (Version 1)
Quarter: 2021Q4

REPORT INFORMATION
  Report Type: Spontaneous
  Country: US (occurrence: US)
  Receive Date: 20211122
  Receipt Date: 20211122
  Transmission Date: 20220303
  Serious: Yes (Death, Hospitalization)
  Sender: FDA-Public Use
  Company Number: None

PATIENT
  Age: 29 Year
  Sex: Male
  Weight: 75 kg

DRUGS (1)
  1. TYLENOL [Suspect]
     Active Substance: ACETAMINOPHEN
     Indication: Suicide attempt
     Dosage: SINGLE UNKNOWN DOSE OF ACETAMINOPHEN ON 19/NOV/2002
     Route: 048
     Dates: start: 20021119, end: 20021119

REACTIONS (12)
  - Completed suicide [Fatal]
  - Acute hepatic failure [Fatal]
  - Hepatorenal syndrome [Fatal]
  - Respiratory failure [Fatal]
  - Brain death [Fatal]
  - Brain oedema [Fatal]
  - Myocardial infarction [Fatal]
  - Arrhythmia [Fatal]
  - Chest X-ray abnormal [Fatal]
  - Herpes simplex [Fatal]
  - Aspergillus infection [Fatal]
  - Intentional overdose [Fatal]

NARRATIVE: CASE EVENT DATE: 20021122
